FAERS Safety Report 5116953-2 (Version None)
Quarter: 2006Q3

REPORT INFORMATION
  Report Type: 
  Country: None (occurrence: None)
  Receive Date: 20060922
  Receipt Date: 20060911
  Transmission Date: 20061208
  Serious: Yes (Disabling)
  Sender: FDA-Public Use
  Company Number: GBWYE890511SEP06

PATIENT
  Age: 54 Year
  Sex: Female

DRUGS (5)
  1. EFFEXOR [Suspect]
     Indication: DEPRESSION
     Dosage: 25MG
     Route: 048
     Dates: start: 20060427, end: 20060727
  2. ACYCLOVIR [Concomitant]
  3. FLUCONAZOLE [Concomitant]
  4. OMEPRAZOLE [Concomitant]
  5. TAXOTERE [Concomitant]

REACTIONS (3)
  - ACIDOSIS [None]
  - HYPERSENSITIVITY [None]
  - PHOTOSENSITIVITY REACTION [None]
